FAERS Safety Report 4332666-9 (Version None)
Quarter: 2004Q1

REPORT INFORMATION
  Report Type: 
  Country: None (occurrence: None)
  Receive Date: 20040330
  Receipt Date: 20040120
  Transmission Date: 20041129
  Serious: No
  Sender: FDA-Public Use
  Company Number: 27605

PATIENT
  Age: 53 Year
  Sex: Female

DRUGS (2)
  1. TRAVOPROST AND TIMOLOL [Suspect]
     Indication: GLAUCOMA
     Route: 047
     Dates: start: 20020523
  2. DICLOFENAC/MISOPROSTOL [Concomitant]

REACTIONS (3)
  - COLON CANCER [None]
  - GROWTH OF EYELASHES [None]
  - UNEXPECTED THERAPEUTIC DRUG EFFECT [None]
